FAERS Safety Report 8394363-2 (Version None)
Quarter: 2012Q2

REPORT INFORMATION
  Report Type: 
  Country: None (occurrence: None)
  Receive Date: 20120525
  Receipt Date: 20120525
  Transmission Date: 20120825
  Serious: Yes (Hospitalization, Other)
  Sender: FDA-Public Use
  Company Number: None

PATIENT

DRUGS (11)
  1. CLONAZEPAM [Concomitant]
  2. ALLOPURINOL [Concomitant]
  3. SPIRONOLACTONE [Concomitant]
  4. CLONIDINE [Concomitant]
  5. CLINDAMYCIN [Suspect]
     Indication: DERMAL CYST
     Dosage: ONE CAPSULE 4 TIMES A DAY PO
     Route: 048
     Dates: start: 20120202, end: 20120211
  6. CLINDAMYCIN [Suspect]
     Indication: DERMAL CYST
     Dosage: ONE CAPSULE 4 TIMES A DAY PO
     Route: 048
     Dates: start: 20120316, end: 20120322
  7. CYMBALTA [Concomitant]
  8. ATENOLOL [Concomitant]
  9. SAROXOLYN [Concomitant]
  10. AMBIEN [Concomitant]
  11. GABAPENTIN [Concomitant]

REACTIONS (8)
  - CONFUSIONAL STATE [None]
  - THINKING ABNORMAL [None]
  - MENTAL DISORDER [None]
  - BLOOD URINE PRESENT [None]
  - MANIA [None]
  - PAIN [None]
  - FEELING ABNORMAL [None]
  - AMNESIA [None]
